FAERS Safety Report 23907159 (Version 1)
Quarter: 2024Q2

REPORT INFORMATION
  Report Type: Spontaneous
  Country: CN (occurrence: CN)
  Receive Date: 20240528
  Receipt Date: 20240528
  Transmission Date: 20240715
  Serious: Yes (Hospitalization, Other)
  Sender: FDA-Public Use
  Company Number: CN-SANDOZ-SDZ2024CN051464

PATIENT
  Age: 67 Year
  Sex: Female

DRUGS (4)
  1. ATORVASTATIN [Suspect]
     Active Substance: ATORVASTATIN
     Indication: Hyperlipidaemia
     Dosage: 20 MG, QD, ONCE PER NIGHT
     Route: 065
  2. ROSUVASTATIN CALCIUM [Suspect]
     Active Substance: ROSUVASTATIN CALCIUM
     Indication: Hyperlipidaemia
     Dosage: 20 MG, QHS
     Route: 065
  3. ASPIRIN [Concomitant]
     Active Substance: ASPIRIN
     Indication: Antiplatelet therapy
     Dosage: 100 MG, QD
     Route: 065
  4. CLOPIDOGREL BISULFATE [Concomitant]
     Active Substance: CLOPIDOGREL BISULFATE
     Indication: Antiplatelet therapy
     Dosage: 75 MG, QD
     Route: 065

REACTIONS (5)
  - Myocarditis [Recovered/Resolved]
  - Rhabdomyolysis [Recovering/Resolving]
  - Drug eruption [Unknown]
  - Hepatic function abnormal [Unknown]
  - Renal function test abnormal [Unknown]
